FAERS Safety Report 10206530 (Version 1)
Quarter: 2014Q2

REPORT INFORMATION
  Report Type: Spontaneous
  Country: US (occurrence: None)
  Receive Date: 20140527
  Receipt Date: 20140527
  Transmission Date: 20141212
  Serious: No
  Sender: FDA-Public Use
  Company Number: None

PATIENT
  Sex: Female

DRUGS (1)
  1. LUPRON DEPOT 3.75 MG ABBVIE US LLC [Suspect]
     Indication: LEIOMYOMA
     Route: 030
     Dates: start: 201312, end: 201404

REACTIONS (4)
  - Arthralgia [None]
  - Joint swelling [None]
  - Night sweats [None]
  - Hot flush [None]
